FAERS Safety Report 7382815-3 (Version None)
Quarter: 2011Q1

REPORT INFORMATION
  Report Type: 
  Country: None (occurrence: None)
  Receive Date: 20110330
  Receipt Date: 20110321
  Transmission Date: 20110831
  Serious: No
  Sender: FDA-Public Use
  Company Number: US-BIOGENIDEC-2011BI010669

PATIENT
  Sex: Female

DRUGS (1)
  1. AVONEX [Suspect]
     Indication: MULTIPLE SCLEROSIS
     Route: 030
     Dates: start: 20010321

REACTIONS (4)
  - EYE DISORDER [None]
  - MOBILITY DECREASED [None]
  - INJECTION SITE HAEMATOMA [None]
  - INJECTION SITE INFLAMMATION [None]
